APPROVED DRUG PRODUCT: BUPRENORPHINE HYDROCHLORIDE AND NALOXONE HYDROCHLORIDE
Active Ingredient: BUPRENORPHINE HYDROCHLORIDE; NALOXONE HYDROCHLORIDE
Strength: EQ 2MG BASE;EQ 0.5MG BASE
Dosage Form/Route: TABLET;SUBLINGUAL
Application: A206953 | Product #001
Applicant: DR REDDYS LABORATORIES SA
Approved: Jul 17, 2020 | RLD: No | RS: No | Type: DISCN